FAERS Safety Report 8368500-X (Version None)
Quarter: 2012Q2

REPORT INFORMATION
  Report Type: 
  Country: None (occurrence: None)
  Receive Date: 20120518
  Receipt Date: 20120509
  Transmission Date: 20120825
  Serious: Yes (Hospitalization)
  Sender: FDA-Public Use
  Company Number: CA-BIOGENIDEC-2011BI015290

PATIENT
  Age: 50 Year
  Sex: Female
  Weight: 81 kg

DRUGS (10)
  1. ATENOLOL [Concomitant]
     Indication: BLOOD PRESSURE
     Route: 048
  2. MODAFINIL [Concomitant]
     Indication: FATIGUE
     Route: 048
  3. TYLENOL W/ CODEINE NO. 3 [Concomitant]
     Indication: PAIN
  4. CARBAMAZEPINE [Concomitant]
     Indication: PAIN
     Route: 048
  5. FLUOXETINE [Concomitant]
     Indication: DEPRESSION
     Route: 048
  6. TYSABRI [Suspect]
     Indication: RELAPSING-REMITTING MULTIPLE SCLEROSIS
     Route: 042
     Dates: start: 20081027
  7. HYDROCHLOROTHIAZIDE [Concomitant]
     Indication: BLOOD PRESSURE
     Route: 048
  8. HYDROXYZINE [Concomitant]
     Indication: BLOOD PRESSURE
     Route: 048
  9. DETROL LA [Concomitant]
     Indication: URINARY INCONTINENCE
     Route: 048
  10. AVENTYL HYDROCHLORIDE [Concomitant]
     Indication: SLEEP DISORDER
     Route: 048

REACTIONS (3)
  - UPPER LIMB FRACTURE [None]
  - POST PROCEDURAL INFECTION [None]
  - FALL [None]
